FAERS Safety Report 9242697 (Version 1)
Quarter: 2013Q2

REPORT INFORMATION
  Report Type: Spontaneous
  Country: US (occurrence: US)
  Receive Date: 20130419
  Receipt Date: 20130419
  Transmission Date: 20140414
  Serious: Yes (Death)
  Sender: FDA-Public Use
  Company Number: US-PFIZER INC-2013120609

PATIENT
  Age: 66 Year
  Sex: Male

DRUGS (2)
  1. INLYTA [Suspect]
     Indication: RENAL CANCER
     Dosage: 7 MG, 2X/DAY
     Route: 048
     Dates: start: 20121226, end: 20130215
  2. AVASTIN [Suspect]
     Dosage: UNK

REACTIONS (1)
  - Intestinal perforation [Fatal]
